FAERS Safety Report 21758731 (Version 1)
Quarter: 2022Q4

REPORT INFORMATION
  Report Type: Spontaneous
  Country: FR (occurrence: FR)
  Receive Date: 20221221
  Receipt Date: 20221221
  Transmission Date: 20230112
  Serious: Yes (Other)
  Sender: FDA-Public Use
  Company Number: FR-MYLANLABS-2022M1135458

PATIENT
  Age: 56 Year
  Sex: Male

DRUGS (8)
  1. DOCETAXEL [Suspect]
     Active Substance: DOCETAXEL
     Indication: Squamous cell carcinoma of head and neck
     Dosage: 75 MILLIGRAM/SQ. METER
     Route: 065
     Dates: start: 2019
  2. CABOZANTINIB [Suspect]
     Active Substance: CABOZANTINIB
     Indication: Squamous cell carcinoma of head and neck
     Dosage: 20 MILLIGRAM, ONCE A DAY,(20 MILLIGRAM, QD)
     Route: 065
  3. CABOZANTINIB [Suspect]
     Active Substance: CABOZANTINIB
     Dosage: 60 MILLIGRAM, ONCE A DAY,(60 MILLIGRAM, QD)
     Route: 065
     Dates: start: 202101
  4. CABOZANTINIB [Suspect]
     Active Substance: CABOZANTINIB
     Dosage: 40 MILLIGRAM, QD
     Route: 065
     Dates: end: 202106
  5. CETUXIMAB [Suspect]
     Active Substance: CETUXIMAB
     Indication: Squamous cell carcinoma of head and neck
     Dosage: UNK (MAINTENANCE THERAPY)
     Route: 065
  6. CETUXIMAB [Suspect]
     Active Substance: CETUXIMAB
     Dosage: 400 MILLIGRAM/SQ. METER
     Route: 065
     Dates: start: 2019
  7. CETUXIMAB [Suspect]
     Active Substance: CETUXIMAB
     Dosage: 250 MILLIGRAM/SQ. METER, QW (FOR 4 CYCLES, FOLLOWED BY MAINTENANCE THERAPY)
     Route: 065
     Dates: start: 2019
  8. CISPLATIN [Suspect]
     Active Substance: CISPLATIN
     Indication: Squamous cell carcinoma of head and neck
     Dosage: 75 MILLIGRAM/SQ. METER
     Route: 065
     Dates: start: 2019

REACTIONS (2)
  - Disease progression [Unknown]
  - Drug ineffective [Unknown]
